FAERS Safety Report 4873474-X (Version None)
Quarter: 2005Q4

REPORT INFORMATION
  Report Type: 
  Country: None (occurrence: None)
  Receive Date: 20051201
  Receipt Date: 20050822
  Transmission Date: 20060501
  Serious: No
  Sender: FDA-Public Use
  Company Number: 2005PV001388

PATIENT
  Age: 68 Year
  Sex: Female
  Weight: 81.1939 kg

DRUGS (11)
  1. BYETTA [Suspect]
     Indication: DIABETES MELLITUS NON-INSULIN-DEPENDENT
     Dosage: 5 MCG; BID; SC
     Route: 058
     Dates: start: 20050724
  2. LOTREL [Concomitant]
  3. INDAPAMIDE [Concomitant]
  4. ACIPHEX [Concomitant]
  5. GLUCOPHAGE [Concomitant]
  6. ASPIRIN [Concomitant]
  7. DETROL - SLOW RELEASE [Concomitant]
  8. NIACIN [Concomitant]
  9. CHOLEST-OFF [Concomitant]
  10. TAMOXIFEN [Concomitant]
  11. REGLAN [Concomitant]

REACTIONS (6)
  - DECREASED APPETITE [None]
  - DIARRHOEA [None]
  - DYSPEPSIA [None]
  - NAUSEA [None]
  - STOMACH DISCOMFORT [None]
  - WEIGHT DECREASED [None]
